FAERS Safety Report 9241723 (Version 2)
Quarter: 2013Q2

REPORT INFORMATION
  Report Type: Spontaneous
  Country: IT (occurrence: IT)
  Receive Date: 20130419
  Receipt Date: 20130424
  Transmission Date: 20140414
  Serious: Yes (Hospitalization)
  Sender: FDA-Public Use
  Company Number: IT-PFIZER INC-2013120332

PATIENT
  Age: 34 Year
  Sex: Male

DRUGS (2)
  1. ALPRAZOLAM [Suspect]
     Dosage: 20 ML, SINGLE
     Route: 048
     Dates: start: 20130408, end: 20130408
  2. LORMETAZEPAM [Suspect]
     Dosage: 20 ML, SINGLE
     Route: 048
     Dates: start: 20130408, end: 20130408

REACTIONS (4)
  - Bradykinesia [Recovering/Resolving]
  - Intentional self-injury [Recovering/Resolving]
  - Bradyphrenia [Recovering/Resolving]
  - Sopor [Recovering/Resolving]
